FAERS Safety Report 6525276-6 (Version None)
Quarter: 2010Q1

REPORT INFORMATION
  Report Type: 
  Country: None (occurrence: None)
  Receive Date: 20100104
  Receipt Date: 20091223
  Transmission Date: 20100710
  Serious: Yes (Life-Threatening, Hospitalization, Disabling, Other)
  Sender: FDA-Public Use
  Company Number: NL-PFIZER INC-2007024707

PATIENT
  Age: 37 Year
  Sex: Male
  Weight: 92 kg

DRUGS (2)
  1. LIPITOR [Suspect]
     Dosage: 40 MG, 1X/DAY
     Route: 048
     Dates: start: 19920101, end: 20051101
  2. CRESTOR [Suspect]
     Indication: HYPERCHOLESTEROLAEMIA
     Dosage: 40 MG, 1X/DAY
     Route: 048
     Dates: start: 20051101, end: 20060629

REACTIONS (12)
  - ANGINA UNSTABLE [None]
  - ANGIOPLASTY [None]
  - CHEST PAIN [None]
  - DYSPNOEA [None]
  - FATIGUE [None]
  - HYPERHIDROSIS [None]
  - MUSCULAR WEAKNESS [None]
  - MYALGIA [None]
  - PALLOR [None]
  - PERCUTANEOUS CORONARY INTERVENTION [None]
  - POLYNEUROPATHY IDIOPATHIC PROGRESSIVE [None]
  - VASCULAR GRAFT [None]
